FAERS Safety Report 14666558 (Version 2)
Quarter: 2018Q2

REPORT INFORMATION
  Report Type: Spontaneous
  Country: DE (occurrence: DE)
  Receive Date: 20180321
  Receipt Date: 20180419
  Transmission Date: 20180711
  Serious: Yes (Hospitalization, Other)
  Sender: FDA-Public Use
  Company Number: DE-CONCORDIA PHARMACEUTICALS INC.-E2B_00010613

PATIENT
  Age: 14 Year
  Sex: Male
  Weight: 82 kg

DRUGS (4)
  1. STRATTERA [Suspect]
     Active Substance: ATOMOXETINE HYDROCHLORIDE
     Indication: ATTENTION DEFICIT/HYPERACTIVITY DISORDER
     Dosage: 60 MG, UNKNOWN
     Route: 048
     Dates: start: 2014
  2. STRATTERA [Suspect]
     Active Substance: ATOMOXETINE HYDROCHLORIDE
     Dosage: 70 MG, UNKNOWN
  3. STRATTERA [Suspect]
     Active Substance: ATOMOXETINE HYDROCHLORIDE
     Dosage: 80 MG, UNKNOWN
     Dates: end: 20171206
  4. PREDNISOLONE. [Suspect]
     Active Substance: PREDNISOLONE
     Indication: PRODUCT USED FOR UNKNOWN INDICATION
     Dosage: 60 MG, EACH MORNING
     Dates: start: 20171117

REACTIONS (11)
  - Globulins increased [Unknown]
  - Myalgia [Recovering/Resolving]
  - Palpitations [Unknown]
  - Oedema peripheral [Recovering/Resolving]
  - Oxygen saturation decreased [Recovered/Resolved]
  - Arthralgia [Recovering/Resolving]
  - Drug level increased [Unknown]
  - Joint swelling [Recovering/Resolving]
  - Chest pain [Recovering/Resolving]
  - Panniculitis [Unknown]
  - Toxicity to various agents [Recovering/Resolving]

NARRATIVE: CASE EVENT DATE: 201711
